FAERS Safety Report 20435013 (Version 3)
Quarter: 2022Q2

REPORT INFORMATION
  Report Type: Spontaneous
  Country: DE (occurrence: DE)
  Receive Date: 20220206
  Receipt Date: 20220423
  Transmission Date: 20220721
  Serious: Yes (Other)
  Sender: FDA-Public Use
  Company Number: DE-NOVARTISPH-PHHY2019DE129976

PATIENT
  Sex: Male

DRUGS (10)
  1. VALSARTAN [Suspect]
     Active Substance: VALSARTAN
     Indication: Essential hypertension
     Dosage: 160 MG, QD
     Route: 065
     Dates: start: 2015, end: 2018
  2. VALSARTAN [Suspect]
     Active Substance: VALSARTAN
     Indication: Essential hypertension
     Dosage: 160 MG, QD (DAILY IN THE MORNING)
     Route: 065
     Dates: start: 20141015, end: 201902
  3. VALSARTAN [Suspect]
     Active Substance: VALSARTAN
     Dosage: 80 MG, QD (DAILY IN THE MORNING)
     Route: 065
  4. VALSARTAN [Concomitant]
     Active Substance: VALSARTAN
     Indication: Hypertension
     Dosage: 160 MG
     Route: 065
     Dates: start: 201902
  5. BISOPROLOL [Concomitant]
     Active Substance: BISOPROLOL
     Indication: Product used for unknown indication
     Dosage: 5 MG. N3
     Route: 065
  6. LEVOTHYROXINE SODIUM\POTASSIUM IODIDE [Concomitant]
     Active Substance: LEVOTHYROXINE SODIUM\POTASSIUM IODIDE
     Indication: Product used for unknown indication
     Dosage: 50 MG, HENNING TAB N3 100 ST
     Route: 065
  7. LEVOTHYROXINE SODIUM\POTASSIUM IODIDE [Concomitant]
     Active Substance: LEVOTHYROXINE SODIUM\POTASSIUM IODIDE
     Dosage: 75 MG
     Route: 065
  8. CIPRO [Concomitant]
     Active Substance: CIPROFLOXACIN HYDROCHLORIDE
     Indication: Product used for unknown indication
     Dosage: 500 MG
     Route: 065
  9. CIPRO [Concomitant]
     Active Substance: CIPROFLOXACIN HYDROCHLORIDE
     Dosage: 250 MG
     Route: 065
  10. NITRENDIPINE [Concomitant]
     Active Substance: NITRENDIPINE
     Indication: Product used for unknown indication
     Dosage: UNK
     Route: 048

REACTIONS (13)
  - Pulmonary mass [Unknown]
  - Middle lobe syndrome [Unknown]
  - Gastrointestinal neoplasm [Unknown]
  - Neoplasm malignant [Unknown]
  - Fear [Unknown]
  - Emotional distress [Unknown]
  - Mental disorder [Unknown]
  - Skin mass [Unknown]
  - Suspected product contamination [Unknown]
  - General physical health deterioration [Unknown]
  - Nausea [Unknown]
  - Headache [Unknown]
  - Insomnia [Unknown]
